FAERS Safety Report 19371570 (Version 3)
Quarter: 2021Q2

REPORT INFORMATION
  Report Type: Spontaneous
  Country: JP (occurrence: JP)
  Receive Date: 20210604
  Receipt Date: 20210622
  Transmission Date: 20210717
  Serious: Yes (Other)
  Sender: FDA-Public Use
  Company Number: JP-TEVA-202105_00011781

PATIENT
  Age: 74 Year
  Sex: Female
  Weight: 51 kg

DRUGS (7)
  1. ACETANOL [Concomitant]
     Active Substance: ACEBUTOLOL HYDROCHLORIDE
     Indication: HYPERTENSION
     Route: 048
  2. RENIVACE [Concomitant]
     Active Substance: ENALAPRIL
     Indication: HYPERTENSION
     Route: 048
  3. TAKEPRON CAPSULES 15 [Suspect]
     Active Substance: LANSOPRAZOLE
     Indication: PRODUCT USED FOR UNKNOWN INDICATION
     Route: 048
     Dates: end: 20130416
  4. LORNOXICAM [Concomitant]
     Active Substance: LORNOXICAM
     Route: 065
  5. SPARTEINE SULFATE [Concomitant]
     Active Substance: SPARTEINE SULFATE
     Route: 065
  6. NORVASC [Concomitant]
     Active Substance: AMLODIPINE BESYLATE
     Indication: HYPERTENSION
     Route: 048
  7. DEPAS [ETIZOLAM] [Concomitant]
     Active Substance: ETIZOLAM
     Route: 048

REACTIONS (3)
  - Colitis microscopic [Recovered/Resolved]
  - Diarrhoea [Unknown]
  - Abdominal pain [Unknown]

NARRATIVE: CASE EVENT DATE: 20130305
